FAERS Safety Report 9747229 (Version 2)
Quarter: 2013Q4

REPORT INFORMATION
  Report Type: Spontaneous
  Country: CA (occurrence: CA)
  Receive Date: 20131212
  Receipt Date: 20131212
  Transmission Date: 20140711
  Serious: Yes (Other)
  Sender: FDA-Public Use
  Company Number: CA-AMGEN-CANSP2013026454

PATIENT
  Age: 63 Year
  Sex: Female

DRUGS (9)
  1. ENBREL [Suspect]
     Indication: PSORIATIC ARTHROPATHY
     Dosage: 50 MG, 2 TIMES/WK
     Route: 065
     Dates: start: 20110406
  2. METHOTREXATE [Suspect]
     Indication: PRODUCT USED FOR UNKNOWN INDICATION
     Dosage: 125 MG, UNK
     Route: 065
  3. FOLIC ACID [Concomitant]
     Dosage: 5 MG, ONE TIME DOSE (EXCEPT METHOTREXATE DAY)
  4. ASPIRIN [Concomitant]
     Dosage: 81 MG, ONE TIME DOSE (OD)
  5. AVAPRO [Concomitant]
     Dosage: 150 MG, ONE TIME DOSE (OD)
  6. LIPITOR [Concomitant]
     Dosage: 10 MG, ONE TIME DOSE (OD)
  7. SYNTHROID [Concomitant]
     Dosage: 10 MG, ONE TIME DOSE (OD)
  8. METFORMIN                          /00082702/ [Concomitant]
     Dosage: 850 MG, BID
  9. PAXIL                              /00500401/ [Concomitant]
     Dosage: 10 MG, ONE TIME DOSE (OD)

REACTIONS (3)
  - Pancreatic enzymes increased [Not Recovered/Not Resolved]
  - Urinary tract infection [Not Recovered/Not Resolved]
  - Bronchitis [Not Recovered/Not Resolved]
